FAERS Safety Report 9104284 (Version 1)
Quarter: 2013Q1

REPORT INFORMATION
  Report Type: Spontaneous
  Country: FR (occurrence: FR)
  Receive Date: 20130219
  Receipt Date: 20130219
  Transmission Date: 20140127
  Serious: Yes (Hospitalization)
  Sender: FDA-Public Use
  Company Number: PHHY2013FR014671

PATIENT
  Age: 59 Year
  Sex: Female

DRUGS (1)
  1. FEMARA [Suspect]
     Indication: BREAST CANCER
     Dosage: 2.5 MG, QD
     Route: 048
     Dates: start: 20080501, end: 20120214

REACTIONS (6)
  - Cytomegalovirus hepatitis [Unknown]
  - Fatigue [Recovering/Resolving]
  - Pyrexia [Unknown]
  - Disturbance in attention [Recovering/Resolving]
  - Irritability [Recovering/Resolving]
  - Memory impairment [Recovering/Resolving]
